FAERS Safety Report 7041660-9 (Version None)
Quarter: 2010Q4

REPORT INFORMATION
  Report Type: 
  Country: None (occurrence: None)
  Receive Date: 20101013
  Receipt Date: 20091124
  Transmission Date: 20110411
  Serious: No
  Sender: FDA-Public Use
  Company Number: US-ASTRAZENECA-2009SE28694

PATIENT
  Age: 71 Year
  Sex: Female
  Weight: 113.4 kg

DRUGS (8)
  1. SYMBICORT [Suspect]
     Indication: ASTHMA
     Dosage: 160/4.5 BID, TOTAL DAILY DOSE: 640 MCG
     Route: 055
     Dates: start: 20091121
  2. ALBUTEROL [Concomitant]
  3. SPIRIVA [Concomitant]
  4. GLYBURIDE [Concomitant]
  5. METFORMIN [Concomitant]
  6. SOTALOL HCL [Concomitant]
  7. RYTHMAL [Concomitant]
  8. COUMADIN [Concomitant]

REACTIONS (2)
  - DYSPNOEA [None]
  - WHEEZING [None]
